FAERS Safety Report 15994834 (Version 1)
Quarter: 2019Q1

REPORT INFORMATION
  Report Type: Report from Study
  Country: IT (occurrence: IT)
  Receive Date: 20190222
  Receipt Date: 20190222
  Transmission Date: 20190418
  Serious: Yes (Other)
  Sender: FDA-Public Use
  Company Number: IT-AXELLIA-002257

PATIENT
  Age: 57 Year
  Sex: Male
  Weight: 100 kg

DRUGS (14)
  1. EPOETIN THETA [Concomitant]
     Active Substance: ERYTHROPOIETIN
  2. PANTOPRAZOLE [Concomitant]
     Active Substance: PANTOPRAZOLE
     Route: 048
  3. PARICALCITOL. [Concomitant]
     Active Substance: PARICALCITOL
     Route: 048
  4. CINACALCET. [Concomitant]
     Active Substance: CINACALCET
     Route: 048
  5. PREGABALIN. [Concomitant]
     Active Substance: PREGABALIN
     Route: 048
  6. MALOX TC [Concomitant]
     Route: 048
  7. SODIUM BICARBONATE. [Concomitant]
     Active Substance: SODIUM BICARBONATE
  8. GENTAMICIN. [Suspect]
     Active Substance: GENTAMICIN
     Indication: CELLULITIS
     Route: 042
     Dates: start: 20180501, end: 20180523
  9. ATENOLOL. [Concomitant]
     Active Substance: ATENOLOL
     Route: 048
  10. ENOXAPARIN [Concomitant]
     Active Substance: ENOXAPARIN
     Route: 058
  11. SEVELAMER [Concomitant]
     Active Substance: SEVELAMER
     Route: 048
  12. COLECALCIFEROL [Concomitant]
     Active Substance: CHOLECALCIFEROL
     Route: 048
  13. KAYEXALATE [Concomitant]
     Active Substance: SODIUM POLYSTYRENE SULFONATE
     Route: 048
  14. VANCOMYCIN [Suspect]
     Active Substance: VANCOMYCIN
     Indication: CELLULITIS
     Dates: start: 20180501, end: 20180523

REACTIONS (2)
  - Vestibular disorder [Recovered/Resolved with Sequelae]
  - Balance disorder [Recovered/Resolved with Sequelae]

NARRATIVE: CASE EVENT DATE: 20180520
